FAERS Safety Report 9398092 (Version 1)
Quarter: 2013Q3

REPORT INFORMATION
  Report Type: Spontaneous
  Country: US (occurrence: US)
  Receive Date: 20130712
  Receipt Date: 20130712
  Transmission Date: 20140515
  Serious: No
  Sender: FDA-Public Use
  Company Number: US-GLAXOSMITHKLINE-A0981403A

PATIENT
  Age: 48 Year
  Sex: Female

DRUGS (1)
  1. FLOVENT [Suspect]
     Route: 055
     Dates: start: 20120606, end: 201206

REACTIONS (5)
  - Hypersensitivity [Recovered/Resolved]
  - Pharyngeal oedema [Unknown]
  - Panic reaction [Unknown]
  - Throat irritation [Unknown]
  - Dysphonia [Unknown]
